FAERS Safety Report 21621670 (Version 1)
Quarter: 2022Q4

REPORT INFORMATION
  Report Type: Report from Study
  Country: US (occurrence: US)
  Receive Date: 20221121
  Receipt Date: 20221121
  Transmission Date: 20230113
  Serious: Yes (Other)
  Sender: FDA-Public Use
  Company Number: US-UCBSA-2022065818

PATIENT
  Sex: Female

DRUGS (1)
  1. FINTEPLA [Suspect]
     Active Substance: FENFLURAMINE
     Indication: Product used for unknown indication
     Dosage: 4.4 MILLILITER, 2X/DAY (BID)

REACTIONS (6)
  - Aggression [Recovered/Resolved]
  - Insomnia [Recovered/Resolved]
  - Trichotillomania [Recovered/Resolved]
  - Anxiety [Recovered/Resolved]
  - Head injury [Recovered/Resolved]
  - Hangover [Recovered/Resolved]
